FAERS Safety Report 4413134-2 (Version None)
Quarter: 2004Q3

REPORT INFORMATION
  Report Type: 
  Country: None (occurrence: None)
  Receive Date: 20040730
  Receipt Date: 20040730
  Transmission Date: 20050211
  Serious: No
  Sender: FDA-Public Use
  Company Number: None

PATIENT
  Age: 67 Year
  Sex: Female
  Weight: 86 kg

DRUGS (2)
  1. IMMUNE GLOBULIN (HUMAN) [Suspect]
     Indication: HAEMOLYTIC ANAEMIA
     Dosage: 36 G IV QD
     Route: 042
     Dates: start: 20040612, end: 20040615
  2. CONTRAST MEDIA [Suspect]
     Indication: COMPUTERISED TOMOGRAM

REACTIONS (2)
  - HAEMODIALYSIS [None]
  - RENAL FAILURE ACUTE [None]
